FAERS Safety Report 7967110-3 (Version None)
Quarter: 2011Q4

REPORT INFORMATION
  Report Type: 
  Country: None (occurrence: None)
  Receive Date: 20111208
  Receipt Date: 20111208
  Transmission Date: 20120403
  Serious: Yes (Other)
  Sender: FDA-Public Use
  Company Number: None

PATIENT
  Age: 57 Year
  Sex: Male
  Weight: 74 kg

DRUGS (1)
  1. PHENYTOIN [Suspect]
     Dosage: 1 X 3 DAILY

REACTIONS (7)
  - MUSCLE SPASMS [None]
  - VOMITING [None]
  - HYPERSENSITIVITY [None]
  - PRURITUS [None]
  - BURNING SENSATION [None]
  - ABDOMINAL PAIN UPPER [None]
  - DIARRHOEA [None]
